FAERS Safety Report 10064177 (Version 1)
Quarter: 2014Q2

REPORT INFORMATION
  Report Type: Spontaneous
  Country: TR (occurrence: None)
  Receive Date: 20140404
  Receipt Date: 20140404
  Transmission Date: 20141212
  Serious: Yes (Death, Hospitalization)
  Sender: FDA-Public Use
  Company Number: 2014P1002738

PATIENT
  Age: 29 Year
  Sex: Female

DRUGS (5)
  1. PHENOBARBITAL [Suspect]
     Indication: EPILEPSY
  2. LEVETIRACETAM [Concomitant]
  3. VALPROIC ACID [Concomitant]
  4. LAMOTRIGINE [Concomitant]
  5. CARBAMAZEPINE [Concomitant]

REACTIONS (6)
  - Drug eruption [None]
  - Nicotinic acid deficiency [None]
  - Multi-organ failure [None]
  - Coma [None]
  - Disorientation [None]
  - Confusional state [None]
